FAERS Safety Report 23976766 (Version 1)
Quarter: 2024Q2

REPORT INFORMATION
  Report Type: Spontaneous
  Country: IT (occurrence: IT)
  Receive Date: 20240614
  Receipt Date: 20240614
  Transmission Date: 20240716
  Serious: Yes (Other)
  Sender: FDA-Public Use
  Company Number: None

PATIENT
  Age: 59 Year
  Sex: Female

DRUGS (5)
  1. BEVACIZUMAB [Suspect]
     Active Substance: BEVACIZUMAB
     Indication: Rectal cancer metastatic
     Dosage: EVERY 14 DAYS
     Dates: start: 20240308
  2. BEVACIZUMAB [Suspect]
     Active Substance: BEVACIZUMAB
     Dosage: 280 MG, EVERY 14 DAYS , II CYCLE
     Route: 042
     Dates: start: 20240325
  3. BEVACIZUMAB [Suspect]
     Active Substance: BEVACIZUMAB
     Dosage: 280 MG, EVERY 14 DAYS , III CYCLE
     Route: 042
     Dates: start: 20240409
  4. BEVACIZUMAB [Suspect]
     Active Substance: BEVACIZUMAB
     Dosage: 280 MG, EVERY 14 DAYS , IV CYCLE
     Route: 042
     Dates: start: 20240423, end: 20240423
  5. LONSURF [Suspect]
     Active Substance: TIPIRACIL HYDROCHLORIDE\TRIFLURIDINE
     Indication: Rectal cancer metastatic
     Dosage: 35 MG/M2, 2X/DAY, POSOLOGY AS PER PROTOCOL
     Route: 048
     Dates: start: 202403

REACTIONS (2)
  - Myelosuppression [Recovering/Resolving]
  - Aspartate aminotransferase increased [Recovering/Resolving]

NARRATIVE: CASE EVENT DATE: 20240405
